FAERS Safety Report 13642670 (Version 2)
Quarter: 2017Q2

REPORT INFORMATION
  Report Type: Spontaneous
  Country: JP (occurrence: JP)
  Receive Date: 20170612
  Receipt Date: 20170622
  Transmission Date: 20170830
  Serious: Yes (Other)
  Sender: FDA-Public Use
  Company Number: JP-BAYER-2017-111637

PATIENT
  Age: 6 Month
  Sex: Male

DRUGS (2)
  1. IMMUNOGLOBULIN (IVIG) [Concomitant]
     Active Substance: HUMAN IMMUNOGLOBULIN G
     Indication: KAWASAKI^S DISEASE
     Dosage: 2 G/KG
     Route: 042
  2. ACETYLSALICYLIC ACID({=100 MG) [Suspect]
     Active Substance: ASPIRIN
     Indication: KAWASAKI^S DISEASE
     Dosage: 30 MG/KG, QD
     Route: 048

REACTIONS (1)
  - Hepatic function abnormal [Recovering/Resolving]
